FAERS Safety Report 24892413 (Version 1)
Quarter: 2025Q1

REPORT INFORMATION
  Report Type: Spontaneous
  Country: CA (occurrence: CA)
  Receive Date: 20250128
  Receipt Date: 20250128
  Transmission Date: 20250409
  Serious: Yes (Death, Other)
  Sender: DR REDDYS
  Company Number: None

PATIENT
  Age: 72 Year
  Sex: Male

DRUGS (20)
  1. AZACITIDINE [Suspect]
     Active Substance: AZACITIDINE
     Indication: Product used for unknown indication
  2. AZACITIDINE [Suspect]
     Active Substance: AZACITIDINE
     Indication: Product used for unknown indication
     Route: 048
  3. AZACITIDINE [Suspect]
     Active Substance: AZACITIDINE
     Route: 048
  4. AZACITIDINE [Suspect]
     Active Substance: AZACITIDINE
     Route: 048
  5. AZACITIDINE [Suspect]
     Active Substance: AZACITIDINE
     Route: 048
  6. AZACITIDINE [Suspect]
     Active Substance: AZACITIDINE
     Route: 048
  7. AZACITIDINE [Suspect]
     Active Substance: AZACITIDINE
     Route: 048
  8. VENETOCLAX [Suspect]
     Active Substance: VENETOCLAX
     Indication: Acute myeloid leukaemia
     Route: 048
  9. VENETOCLAX [Suspect]
     Active Substance: VENETOCLAX
     Route: 048
  10. VENETOCLAX [Suspect]
     Active Substance: VENETOCLAX
     Route: 048
  11. VENETOCLAX [Suspect]
     Active Substance: VENETOCLAX
     Route: 048
  12. VENETOCLAX [Suspect]
     Active Substance: VENETOCLAX
     Route: 048
  13. VENETOCLAX [Suspect]
     Active Substance: VENETOCLAX
     Route: 048
  14. VENETOCLAX [Suspect]
     Active Substance: VENETOCLAX
     Route: 048
  15. VENETOCLAX [Suspect]
     Active Substance: VENETOCLAX
     Route: 048
  16. VENETOCLAX [Suspect]
     Active Substance: VENETOCLAX
     Route: 048
  17. VENETOCLAX [Suspect]
     Active Substance: VENETOCLAX
     Route: 048
  18. VENETOCLAX [Suspect]
     Active Substance: VENETOCLAX
     Route: 048
  19. COVID 19 VACCINATION [Concomitant]
     Indication: COVID-19 prophylaxis
  20. FLUCONAZOLE [Concomitant]
     Active Substance: FLUCONAZOLE
     Indication: Product used for unknown indication

REACTIONS (1)
  - Pneumonia [Fatal]
